FAERS Safety Report 9478791 (Version 2)
Quarter: 2013Q3

REPORT INFORMATION
  Report Type: Spontaneous
  Country: BR (occurrence: BR)
  Receive Date: 20130827
  Receipt Date: 20130827
  Transmission Date: 20140515
  Serious: Yes (Other)
  Sender: FDA-Public Use
  Company Number: BR-JNJFOC-20130602012

PATIENT
  Age: 15 Year
  Sex: Female
  Weight: 44.5 kg

DRUGS (6)
  1. REMICADE [Suspect]
     Indication: CROHN^S DISEASE
     Route: 042
     Dates: start: 20130725
  2. REMICADE [Suspect]
     Indication: CROHN^S DISEASE
     Route: 042
     Dates: start: 20130531
  3. REMICADE [Suspect]
     Indication: CROHN^S DISEASE
     Route: 042
     Dates: start: 20130516
  4. CARBAMAZEPINE [Concomitant]
     Route: 065
  5. TRAMAL [Concomitant]
     Route: 065
  6. TYLEX [Concomitant]
     Route: 065

REACTIONS (4)
  - Depression [Unknown]
  - Crohn^s disease [Not Recovered/Not Resolved]
  - Nervousness [Unknown]
  - Poor venous access [Recovered/Resolved]
